FAERS Safety Report 19919486 (Version 8)
Quarter: 2022Q4

REPORT INFORMATION
  Report Type: Report from Study
  Country: CA (occurrence: CA)
  Receive Date: 20211005
  Receipt Date: 20221027
  Transmission Date: 20230112
  Serious: Yes (Other)
  Sender: FDA-Public Use
  Company Number: CA-BAUSCH-BL-2021-019744

PATIENT
  Sex: Female
  Weight: 134.69 kg

DRUGS (15)
  1. CONTRAVE [Suspect]
     Active Substance: BUPROPION HYDROCHLORIDE\NALTREXONE HYDROCHLORIDE
     Indication: Weight control
     Dosage: 90 MG/8 MG (1 DOSAGE FORMS,1 IN 1 D)
     Route: 048
     Dates: start: 20210516, end: 20210522
  2. CONTRAVE [Suspect]
     Active Substance: BUPROPION HYDROCHLORIDE\NALTREXONE HYDROCHLORIDE
     Dosage: 90 MG/ 8 MG, ONE TABLET IN THE MORNING AND 1 TABLET IN THE EVENING
     Route: 048
     Dates: start: 20210523, end: 20210529
  3. CONTRAVE [Suspect]
     Active Substance: BUPROPION HYDROCHLORIDE\NALTREXONE HYDROCHLORIDE
     Dosage: 90 MG/8 MG, TWO TABLET IN THE MORNING AND 1 TABLET IN THE EVENING (1 IN 12 HR)
     Route: 048
     Dates: start: 20210530, end: 2021
  4. CONTRAVE [Suspect]
     Active Substance: BUPROPION HYDROCHLORIDE\NALTREXONE HYDROCHLORIDE
     Dosage: 90 MG/8 MG, TWO TABLET IN THE MORNING AND TWO TABLET IN THE EVENING
     Route: 048
     Dates: start: 20210606, end: 20211212
  5. CONTRAVE [Suspect]
     Active Substance: BUPROPION HYDROCHLORIDE\NALTREXONE HYDROCHLORIDE
     Dosage: 90 MG/8 MG, 2 TABLET IN THE MORNING AND 1 TABLET IN THE EVENING (1 IN 12 HR)
     Route: 048
     Dates: start: 20211213, end: 202201
  6. CONTRAVE [Suspect]
     Active Substance: BUPROPION HYDROCHLORIDE\NALTREXONE HYDROCHLORIDE
     Dosage: 90 MG/8 MG, 1 TABLET BID, APPROX. 03/JAN/2022
     Route: 048
     Dates: start: 202201, end: 2022
  7. CONTRAVE [Suspect]
     Active Substance: BUPROPION HYDROCHLORIDE\NALTREXONE HYDROCHLORIDE
     Dosage: (1 DOSAGE FORMS,1 IN 24 HR)
     Route: 048
     Dates: start: 2022, end: 20220322
  8. CONTRAVE [Suspect]
     Active Substance: BUPROPION HYDROCHLORIDE\NALTREXONE HYDROCHLORIDE
     Dosage: 90/8MG,1 TAB BID
     Route: 048
     Dates: start: 2022
  9. PFIZER-BIONTECH COVID-19 VACCINE [Suspect]
     Active Substance: TOZINAMERAN
     Indication: COVID-19 prophylaxis
     Dosage: 2ND DOSE (PFIZER) (1 IN 1 D)
     Route: 030
     Dates: start: 20210628, end: 20210628
  10. CITALOPRAM [Concomitant]
     Active Substance: CITALOPRAM HYDROBROMIDE
     Indication: Anxiety
     Dosage: 40 MG, 1 IN 1 D
     Route: 048
     Dates: start: 20210515
  11. CITALOPRAM [Concomitant]
     Active Substance: CITALOPRAM HYDROBROMIDE
     Dosage: 20 MG, 1 IN 1 D
     Route: 048
     Dates: start: 20210516, end: 20210918
  12. CITALOPRAM [Concomitant]
     Active Substance: CITALOPRAM HYDROBROMIDE
     Dosage: 40 MG, 1 IN 1 D
     Route: 048
     Dates: start: 20210919
  13. VITAMIN D NOS [Concomitant]
     Active Substance: VITAMIN D NOS
     Indication: Vitamin supplementation
     Dosage: 2000 IU, 1 IN 1 D
     Route: 048
  14. VITAMIN D NOS [Concomitant]
     Active Substance: VITAMIN D NOS
     Dosage: 20 MG, 1 IN 1 D
     Route: 048
     Dates: start: 20210516, end: 20210918
  15. VITAMIN D NOS [Concomitant]
     Active Substance: VITAMIN D NOS
     Dosage: 40 MG, 1 IN 1 D
     Route: 048
     Dates: start: 20210919

REACTIONS (21)
  - Depression suicidal [Recovered/Resolved]
  - Uterine leiomyoma [Recovered/Resolved]
  - Uterine haemorrhage [Recovered/Resolved]
  - Uterine cancer [Recovered/Resolved]
  - Sleep apnoea syndrome [Recovered/Resolved]
  - Sleep terror [Recovered/Resolved]
  - Abdominal distension [Recovered/Resolved]
  - Pyrexia [Recovered/Resolved]
  - Chills [Recovered/Resolved]
  - Hyperhidrosis [Recovered/Resolved]
  - Psychiatric symptom [Recovered/Resolved]
  - Constipation [Recovered/Resolved]
  - Abnormal dreams [Recovered/Resolved]
  - Nausea [Recovered/Resolved]
  - Vomiting [Recovered/Resolved]
  - Headache [Recovered/Resolved]
  - Dehydration [Recovered/Resolved]
  - Middle insomnia [Recovered/Resolved]
  - Hot flush [Recovered/Resolved]
  - Dry mouth [Recovering/Resolving]
  - Intentional product use issue [Unknown]

NARRATIVE: CASE EVENT DATE: 20210101
